FAERS Safety Report 7129726-6 (Version None)
Quarter: 2010Q4

REPORT INFORMATION
  Report Type: 
  Country: None (occurrence: None)
  Receive Date: 20101130
  Receipt Date: 20101119
  Transmission Date: 20110411
  Serious: Yes (Hospitalization)
  Sender: FDA-Public Use
  Company Number: US-AMGEN-USASP2010004290

PATIENT

DRUGS (2)
  1. ENBREL [Suspect]
     Indication: RHEUMATOID ARTHRITIS
     Dosage: 50 MG, QWK
     Dates: start: 20100629, end: 20101110
  2. METHOTREXATE [Concomitant]
     Dosage: 2.5 G, 4 TIMES/WK
     Route: 048

REACTIONS (8)
  - ABASIA [None]
  - ABDOMINAL PAIN UPPER [None]
  - BLOOD PRESSURE DECREASED [None]
  - CELLULITIS [None]
  - CHEST PAIN [None]
  - FATIGUE [None]
  - PAIN IN EXTREMITY [None]
  - SEPTIC SHOCK [None]
